FAERS Safety Report 8710351 (Version 2)
Quarter: 2013Q1

REPORT INFORMATION
  Report Type: Spontaneous
  Country: HK (occurrence: None)
  Receive Date: 20120720
  Receipt Date: 20130201
  Transmission Date: 20140127
  Serious: Yes (Hospitalization)
  Sender: FDA-Public Use
  Company Number: DSA_58484_2012

PATIENT
  Age: 62 Year
  Sex: Female

DRUGS (3)
  1. FLUOROURACIL (FLUOROURACIL) [Suspect]
     Dosage: (DF), (DF; DOSE REDUCED)
     Dates: start: 20100723, end: 20100723
  2. EPIRUBICIN [Suspect]
     Dosage: (DF), (DF; DOSE REDUCED)
     Dates: start: 20100723, end: 20100723
  3. CYCLOPHOSPHAMIDE (CYCLOPHOSPHAMIDE) [Suspect]
     Dosage: (DF), (DF; DOSE REDUCED)
     Dates: start: 20100723, end: 20100723

REACTIONS (1)
  - FEBRILE NEUTROPENIA [None]
